FAERS Safety Report 25328400 (Version 3)
Quarter: 2025Q3

REPORT INFORMATION
  Report Type: Report from Study
  Country: CO (occurrence: CO)
  Receive Date: 20250518
  Receipt Date: 20250926
  Transmission Date: 20251021
  Serious: Yes (Other)
  Sender: JOHNSON AND JOHNSON
  Company Number: CO-JNJFOC-20250515857

PATIENT
  Age: 58 Year
  Sex: Female
  Weight: 54 kg

DRUGS (2)
  1. TREMFYA [Suspect]
     Active Substance: GUSELKUMAB
     Indication: Psoriatic arthropathy
     Dosage: LAST ADMINISTRATION: 31-MAR-2025
     Route: 058
     Dates: start: 20241010
  2. TREMFYA [Suspect]
     Active Substance: GUSELKUMAB

REACTIONS (14)
  - Seizure [Unknown]
  - Psoriatic arthropathy [Unknown]
  - Liver injury [Unknown]
  - Abdominal discomfort [Unknown]
  - Hypersensitivity [Not Recovered/Not Resolved]
  - Product formulation issue [Unknown]
  - Hypotension [Unknown]
  - Vomiting [Unknown]
  - Oropharyngeal pain [Unknown]
  - Headache [Unknown]
  - Malaise [Unknown]
  - Hypoaesthesia [Not Recovered/Not Resolved]
  - Injection site pain [Not Recovered/Not Resolved]
  - Product outer packaging issue [Unknown]

NARRATIVE: CASE EVENT DATE: 20250101
